FAERS Safety Report 5703140-X (Version None)
Quarter: 2008Q2

REPORT INFORMATION
  Report Type: 
  Country: None (occurrence: None)
  Receive Date: 20080411
  Receipt Date: 20080401
  Transmission Date: 20081010
  Serious: Yes (Hospitalization, Other)
  Sender: FDA-Public Use
  Company Number: US-PFIZER INC-2007105633

PATIENT
  Sex: Female
  Weight: 65.3 kg

DRUGS (11)
  1. CHANTIX [Suspect]
     Indication: SMOKING CESSATION THERAPY
  2. CYMBALTA [Concomitant]
  3. LYRICA [Concomitant]
  4. XANAX [Concomitant]
  5. ALL OTHER THERAPEUTIC PRODUCTS [Concomitant]
  6. PROMETHAZINE [Concomitant]
  7. PREVACID [Concomitant]
  8. ACETYLSALICYLIC ACID SRT [Concomitant]
  9. LEVOXYL [Concomitant]
  10. OXYCONTIN [Concomitant]
     Dosage: DAILY DOSE:20MG
  11. OXYCODONE HCL [Concomitant]

REACTIONS (6)
  - BLOOD GLUCOSE ABNORMAL [None]
  - CONVULSION [None]
  - MEMORY IMPAIRMENT [None]
  - PNEUMONIA [None]
  - PSYCHOTIC BEHAVIOUR [None]
  - SUICIDAL IDEATION [None]
